FAERS Safety Report 4508912-5 (Version None)
Quarter: 2004Q4

REPORT INFORMATION
  Report Type: 
  Country: None (occurrence: None)
  Receive Date: 20041123
  Receipt Date: 20041119
  Transmission Date: 20050328
  Serious: Yes (Hospitalization)
  Sender: FDA-Public Use
  Company Number: BR-GLAXOSMITHKLINE-A0534680A

PATIENT
  Age: 6 Year
  Sex: Male
  Weight: 33 kg

DRUGS (2)
  1. AMOXIL [Suspect]
     Indication: DRUG USE FOR UNKNOWN INDICATION
     Route: 048
  2. UNSPECIFIED MEDICATION [Concomitant]

REACTIONS (2)
  - GENERALISED OEDEMA [None]
  - URTICARIA [None]
